FAERS Safety Report 5753161-6 (Version None)
Quarter: 2008Q2

REPORT INFORMATION
  Report Type: 
  Country: None (occurrence: None)
  Receive Date: 20080530
  Receipt Date: 20080527
  Transmission Date: 20081010
  Serious: Yes (Other)
  Sender: FDA-Public Use
  Company Number: US-JNJFOC-20080302090

PATIENT
  Sex: Male
  Weight: 122.47 kg

DRUGS (8)
  1. CONCERTA [Suspect]
     Indication: ANXIETY
     Route: 048
  2. TESTOSTERONE [Suspect]
     Indication: DRUG USE FOR UNKNOWN INDICATION
  3. PROVIGIL [Suspect]
     Indication: DRUG USE FOR UNKNOWN INDICATION
     Route: 048
  4. DIAZEPAM [Suspect]
     Indication: DRUG USE FOR UNKNOWN INDICATION
     Route: 048
  5. DOXEPIN HCL [Suspect]
     Indication: DEPRESSION
     Route: 048
  6. PAXIL [Suspect]
     Indication: DEPRESSION
     Route: 048
  7. RITALIN [Suspect]
     Indication: DRUG USE FOR UNKNOWN INDICATION
  8. FINASTERIDE [Suspect]
     Indication: DRUG USE FOR UNKNOWN INDICATION
     Route: 048

REACTIONS (3)
  - HOMICIDE [None]
  - LOSS OF CONSCIOUSNESS [None]
  - TREMOR [None]
